FAERS Safety Report 14319605 (Version 1)
Quarter: 2017Q4

REPORT INFORMATION
  Report Type: Spontaneous
  Country: US (occurrence: ES)
  Receive Date: 20171222
  Receipt Date: 20171222
  Transmission Date: 20180321
  Serious: Yes (Other)
  Sender: FDA-Public Use
  Company Number: US-SUNOVION-2017SUN005425

PATIENT

DRUGS (2)
  1. INDACATEROL AND GLYCOPYRROLATE [Suspect]
     Active Substance: GLYCOPYRROLATE\INDACATEROL MALEATE
     Indication: CHRONIC OBSTRUCTIVE PULMONARY DISEASE
     Dosage: 1 DF, 85\43 UG; UNK REGIMEN #1
     Route: 055
     Dates: start: 2016
  2. XALATAN [Concomitant]
     Active Substance: LATANOPROST
     Dosage: 50 UNK, OT
     Route: 047
     Dates: start: 201708, end: 20171026

REACTIONS (2)
  - Ocular hypertension [Not Recovered/Not Resolved]
  - Condition aggravated [Not Recovered/Not Resolved]
